FAERS Safety Report 13163178 (Version 1)
Quarter: 2017Q1

REPORT INFORMATION
  Report Type: Spontaneous
  Country: US (occurrence: US)
  Receive Date: 20170130
  Receipt Date: 20170130
  Transmission Date: 20170428
  Serious: No
  Sender: FDA-Public Use
  Company Number: US-JEROME STEVENS PHARMACEUTICALS, INC.-1062500

PATIENT
  Sex: Female

DRUGS (7)
  1. DIGOXIN. [Suspect]
     Active Substance: DIGOXIN
     Indication: ATRIAL FIBRILLATION
     Route: 048
     Dates: start: 201601
  2. ELIQUIS [Concomitant]
     Active Substance: APIXABAN
  3. METOPROLOL 200 MG [Concomitant]
  4. VITAMIN B COMPLEX [Concomitant]
     Active Substance: CYANOCOBALAMIN\DEXPANTHENOL\NIACINAMIDE\PYRIDOXINE HYDROCHLORIDE\RIBOFLAVIN 5^-PHOSPHATE SODIUM\THIAMINE HYDROCHLORIDE\VITAMIN B COMPLEX
  5. LISINOPRIL. [Concomitant]
     Active Substance: LISINOPRIL
  6. POTASSIUM [Concomitant]
     Active Substance: POTASSIUM
  7. DIUREX WATER PILLS [Concomitant]
     Active Substance: CAFFEINE\MAGNESIUM SALICYLATE

REACTIONS (6)
  - Rash [None]
  - Local swelling [None]
  - Wheezing [None]
  - Dizziness [None]
  - Pruritus generalised [None]
  - Hypoaesthesia [None]
